FAERS Safety Report 5356236-9 (Version None)
Quarter: 2007Q2

REPORT INFORMATION
  Report Type: 
  Country: None (occurrence: None)
  Receive Date: 20070613
  Receipt Date: 20070604
  Transmission Date: 20071010
  Serious: Yes (Other)
  Sender: FDA-Public Use
  Company Number: FR-ABBOTT-07P-056-0367337-00

PATIENT
  Sex: Female
  Weight: 70 kg

DRUGS (5)
  1. HUMIRA [Suspect]
     Indication: CROHN'S DISEASE
     Route: 058
     Dates: start: 20070419
  2. TRAMADOL HCL [Suspect]
     Indication: ARTHRALGIA
     Route: 048
  3. MEPROBAMATE [Suspect]
     Indication: ANTIDEPRESSANT THERAPY
     Route: 048
  4. MIANSERINE [Suspect]
     Indication: ANTIDEPRESSANT THERAPY
     Route: 048
  5. PARACETAMOL [Suspect]
     Indication: ARTHRALGIA
     Route: 048

REACTIONS (1)
  - EPILEPSY [None]
